FAERS Safety Report 5053402-7 (Version None)
Quarter: 2006Q3

REPORT INFORMATION
  Report Type: 
  Country: None (occurrence: None)
  Receive Date: 20060712
  Receipt Date: 20060630
  Transmission Date: 20061208
  Serious: Yes (Other)
  Sender: FDA-Public Use
  Company Number: 2006069987

PATIENT
  Age: 66 Year
  Sex: Male

DRUGS (3)
  1. XALATAN [Suspect]
     Dosage: ONE DROP (DAILY)
  2. CORTICOSTEROIDS [Concomitant]
  3. DORZOLAMIDE [Concomitant]

REACTIONS (5)
  - CATARACT OPERATION [None]
  - MACULAR OEDEMA [None]
  - UVEITIS [None]
  - VISUAL ACUITY REDUCED [None]
  - VITREOUS FLOATERS [None]
